FAERS Safety Report 9903202 (Version 1)
Quarter: 2014Q1

REPORT INFORMATION
  Report Type: Spontaneous
  Country: US (occurrence: US)
  Receive Date: 20140217
  Receipt Date: 20140217
  Transmission Date: 20141002
  Serious: No
  Sender: FDA-Public Use
  Company Number: US-ASTRAZENECA-2013SE49356

PATIENT
  Age: 72 Year
  Sex: Female

DRUGS (2)
  1. ATENOLOL [Suspect]
     Route: 065
  2. PROPANOLOL [Suspect]
     Route: 065

REACTIONS (2)
  - Diarrhoea [Unknown]
  - Dyspepsia [Unknown]
